FAERS Safety Report 9624252 (Version 1)
Quarter: 2013Q4

REPORT INFORMATION
  Report Type: Spontaneous
  Country: US (occurrence: US)
  Receive Date: 20131015
  Receipt Date: 20131015
  Transmission Date: 20140711
  Serious: No
  Sender: FDA-Public Use
  Company Number: US-BAYER-2013-124786

PATIENT
  Sex: 0

DRUGS (5)
  1. ALEVE CAPLET [Suspect]
     Indication: MUSCULOSKELETAL PAIN
  2. ALEVE CAPLET [Suspect]
     Indication: BACK PAIN
  3. ADVIL [Suspect]
     Indication: MUSCULOSKELETAL PAIN
  4. ADVIL [Suspect]
     Indication: BACK PAIN
  5. TIGER BALM [Suspect]

REACTIONS (1)
  - Drug ineffective [None]
